FAERS Safety Report 15856867 (Version 1)
Quarter: 2019Q1

REPORT INFORMATION
  Report Type: Spontaneous
  Country: US (occurrence: US)
  Receive Date: 20190122
  Receipt Date: 20190122
  Transmission Date: 20190417
  Serious: No
  Sender: FDA-Public Use
  Company Number: None

PATIENT
  Age: 62 Year
  Sex: Male
  Weight: 87.75 kg

DRUGS (6)
  1. REPATHA [Suspect]
     Active Substance: EVOLOCUMAB
     Indication: BLOOD CHOLESTEROL INCREASED
     Dosage: ?          QUANTITY:1 INJECTION(S);OTHER FREQUENCY:ONE PER MONTH;?
     Route: 058
     Dates: start: 20180705, end: 20181225
  2. DRISDOL [Concomitant]
     Active Substance: ERGOCALCIFEROL
  3. PAXIL [Concomitant]
     Active Substance: PAROXETINE HYDROCHLORIDE
  4. ASPIRIN EC 81 MG [Concomitant]
  5. TURMERIC CURCUMIN [Concomitant]
     Active Substance: HERBALS\TURMERIC
  6. BRILINTA [Concomitant]
     Active Substance: TICAGRELOR

REACTIONS (2)
  - Blood urine present [None]
  - Abdominal pain [None]

NARRATIVE: CASE EVENT DATE: 20181224
